FAERS Safety Report 13906373 (Version 2)
Quarter: 2017Q3

REPORT INFORMATION
  Report Type: Spontaneous
  Country: FR (occurrence: FR)
  Receive Date: 20170825
  Receipt Date: 20170905
  Transmission Date: 20171127
  Serious: Yes (Other)
  Sender: FDA-Public Use
  Company Number: FR-BAYER-2017-158806

PATIENT
  Age: 29 Year
  Sex: Female

DRUGS (1)
  1. MIRENA [Suspect]
     Active Substance: LEVONORGESTREL
     Indication: CONTRACEPTION
     Dosage: 20 MCG/24HR, CONT
     Route: 015
     Dates: start: 20170124, end: 20170801

REACTIONS (7)
  - Dyspnoea [Recovering/Resolving]
  - Fatigue [Recovering/Resolving]
  - Menorrhagia [Recovering/Resolving]
  - Chest pain [Recovering/Resolving]
  - Diffuse alopecia [Recovering/Resolving]
  - Abdominal pain [Recovering/Resolving]
  - Loss of libido [Recovering/Resolving]

NARRATIVE: CASE EVENT DATE: 201706
